FAERS Safety Report 12293110 (Version 1)
Quarter: 2016Q2

REPORT INFORMATION
  Report Type: Report from Study
  Country: US (occurrence: US)
  Receive Date: 20160421
  Receipt Date: 20160421
  Transmission Date: 20160815
  Serious: No
  Sender: FDA-Public Use
  Company Number: US-AMGEN-USASL2016048561

PATIENT
  Age: 70 Year
  Sex: Female

DRUGS (1)
  1. REPATHA [Suspect]
     Active Substance: EVOLOCUMAB
     Indication: PRODUCT USED FOR UNKNOWN INDICATION
     Dosage: UNK
     Route: 065

REACTIONS (10)
  - Muscle spasms [Unknown]
  - Nerve injury [Unknown]
  - Lethargy [Unknown]
  - Gastroenteritis [Unknown]
  - Asthenia [Unknown]
  - Feeling abnormal [Unknown]
  - Pain in extremity [Unknown]
  - Nasopharyngitis [Unknown]
  - Back pain [Unknown]
  - Underdose [Unknown]
